FAERS Safety Report 6618803-1 (Version None)
Quarter: 2010Q1

REPORT INFORMATION
  Report Type: 
  Country: None (occurrence: None)
  Receive Date: 20100305
  Receipt Date: 20100305
  Transmission Date: 20100710
  Serious: Yes (Other)
  Sender: FDA-Public Use
  Company Number: None

PATIENT
  Age: 34 Year
  Sex: Female
  Weight: 81.6475 kg

DRUGS (3)
  1. PHENTERMINE HCL [Suspect]
     Indication: WEIGHT CONTROL
     Dosage: 37.5 DAILY P.O.
     Route: 048
     Dates: start: 20100101, end: 20100303
  2. HCG SUBCUTANEOUS INJECTIONS [Concomitant]
  3. B12 SUBCUTANEOUS INJECTIONS [Concomitant]

REACTIONS (4)
  - ANGER [None]
  - ANXIETY [None]
  - PANIC ATTACK [None]
  - SUICIDAL IDEATION [None]
